FAERS Safety Report 21374104 (Version 1)
Quarter: 2022Q3

REPORT INFORMATION
  Report Type: Spontaneous
  Country: FR (occurrence: FR)
  Receive Date: 20220926
  Receipt Date: 20220926
  Transmission Date: 20221027
  Serious: Yes (Death, Other)
  Sender: FDA-Public Use
  Company Number: FR-INCYTE CORPORATION-2022IN009113

PATIENT

DRUGS (8)
  1. TAFASITAMAB [Suspect]
     Active Substance: TAFASITAMAB
     Indication: Diffuse large B-cell lymphoma
     Dosage: UNK
     Route: 065
  2. BISOPROLOL FUMARATE [Concomitant]
     Active Substance: BISOPROLOL FUMARATE
     Indication: Hypertension
     Dosage: UNK
     Route: 065
     Dates: start: 20160101
  3. ALFUZOSIN [Concomitant]
     Active Substance: ALFUZOSIN
     Indication: Hypertension
     Dosage: UNK
     Route: 065
     Dates: start: 20160101
  4. FUROSEMIDE [Concomitant]
     Active Substance: FUROSEMIDE
     Indication: Hypertension
     Dosage: UNK
     Route: 065
     Dates: start: 20160101
  5. KARDEGIC [Concomitant]
     Active Substance: ASPIRIN DL-LYSINE
     Indication: Hypertension
     Dosage: UNK
     Route: 065
     Dates: start: 20160101
  6. LERCANIDIPINE [Concomitant]
     Active Substance: LERCANIDIPINE
     Indication: Hypertension
     Dosage: UNK
     Route: 065
     Dates: start: 20160101
  7. LANSOPRAZOLE [Concomitant]
     Active Substance: LANSOPRAZOLE
     Indication: Hypertension
     Dosage: UNK
     Route: 065
     Dates: start: 20160101
  8. LEVOFLOXACIN [Concomitant]
     Active Substance: LEVOFLOXACIN
     Indication: Hypertension
     Dosage: UNK
     Route: 065
     Dates: start: 20160101

REACTIONS (1)
  - Death [Fatal]
